FAERS Safety Report 7414599-4 (Version None)
Quarter: 2011Q2

REPORT INFORMATION
  Report Type: 
  Country: None (occurrence: None)
  Receive Date: 20110414
  Receipt Date: 20110412
  Transmission Date: 20111010
  Serious: Yes (Other)
  Sender: FDA-Public Use
  Company Number: FR-PFIZER INC-2011080775

PATIENT
  Age: 58 Year
  Sex: Female

DRUGS (1)
  1. CHAMPIX [Suspect]
     Dosage: 0.5 MG, UNK
     Dates: start: 20110409

REACTIONS (2)
  - PAIN IN EXTREMITY [None]
  - ECCHYMOSIS [None]
